FAERS Safety Report 9716163 (Version 1)
Quarter: 2013Q4

REPORT INFORMATION
  Report Type: Spontaneous
  Country: JP (occurrence: JP)
  Receive Date: 20131127
  Receipt Date: 20131127
  Transmission Date: 20140711
  Serious: Yes (Hospitalization)
  Sender: FDA-Public Use
  Company Number: JP-009507513-1311JPN008894

PATIENT
  Age: 42 Year
  Sex: Male

DRUGS (2)
  1. PEGINTRON [Suspect]
     Dosage: DAILY DOSE UNKNOWN
     Route: 058
  2. REBETOL [Suspect]
     Dosage: DAILY DOSE UNKNOWN
     Route: 048

REACTIONS (1)
  - VIIth nerve paralysis [Unknown]
